FAERS Safety Report 6819066-4 (Version None)
Quarter: 2010Q3

REPORT INFORMATION
  Report Type: 
  Country: None (occurrence: None)
  Receive Date: 20100707
  Receipt Date: 20100628
  Transmission Date: 20110219
  Serious: Yes (Hospitalization, Other)
  Sender: FDA-Public Use
  Company Number: JP-JNJFOC-20090604911

PATIENT
  Sex: Male
  Weight: 57 kg

DRUGS (36)
  1. FENTANYL [Suspect]
     Indication: PAIN
     Route: 062
  2. FENTANYL [Suspect]
     Route: 062
  3. FENTANYL [Suspect]
     Route: 062
  4. FENTANYL [Suspect]
     Route: 062
  5. ADALAT CC [Concomitant]
     Indication: HYPERTENSION
     Route: 048
  6. BLOPRESS [Concomitant]
     Indication: HYPERTENSION
     Route: 048
  7. TAKEPRON [Concomitant]
     Indication: GASTRITIS PROPHYLAXIS
     Route: 048
  8. TAKEPRON [Concomitant]
     Indication: GASTRIC ULCER
     Route: 048
  9. URIEF [Concomitant]
     Indication: CYSTITIS
     Route: 048
  10. URIEF [Concomitant]
     Indication: BENIGN PROSTATIC HYPERPLASIA
     Route: 048
  11. POLYFUL [Concomitant]
     Indication: CONSTIPATION
     Dosage: FINE GRAIN
     Route: 048
  12. POLYFUL [Concomitant]
     Indication: IRRITABLE BOWEL SYNDROME
     Dosage: FINE GRAIN
     Route: 048
  13. TETRAMIDE [Concomitant]
     Indication: SOMATOFORM DISORDER
     Route: 048
  14. PAXIL [Concomitant]
     Indication: SOMATOFORM DISORDER
     Route: 048
  15. DEPAS [Concomitant]
     Indication: SOMATOFORM DISORDER
     Dosage: FINE GRAIN
     Route: 048
  16. PALGIN (ETIZOLAM) [Concomitant]
     Indication: INSOMNIA
     Route: 048
  17. PALGIN (ETIZOLAM) [Concomitant]
     Indication: SOMATOFORM DISORDER
     Route: 048
  18. HANGE-KOBUKU-TO [Concomitant]
     Indication: INSOMNIA
     Dosage: GRANULATED POWDER
     Route: 048
  19. RIKKUNSHI-TO [Concomitant]
     Indication: PROPHYLAXIS
     Dosage: GRANULATED POWDER
     Route: 048
  20. RIKKUNSHI-TO [Concomitant]
     Indication: DECREASED APPETITE
     Dosage: GRANULATED POWDER
     Route: 048
  21. PYRINAZIN [Concomitant]
     Indication: PYREXIA
     Dosage: GRANULATED POWDER
     Route: 048
  22. NOVAMIN [Concomitant]
     Indication: PROPHYLAXIS OF NAUSEA AND VOMITING
     Route: 048
  23. NOVAMIN [Concomitant]
     Route: 048
  24. LAXOBERON [Concomitant]
     Indication: CONSTIPATION
     Dosage: LIQUID MEDICINE FOR INTERNAL USE (P.R.N) AS NEEDED
     Route: 048
  25. MORPHINE HYDROCHLORIDE [Concomitant]
     Indication: PAIN
     Route: 048
  26. KENEI G (GLYCERIN) [Concomitant]
     Indication: CONSTIPATION
     Route: 054
  27. KENEI G (GLYCERIN) [Concomitant]
     Route: 054
  28. NEUROTROPIN [Concomitant]
     Indication: ABDOMINAL PAIN
     Route: 041
  29. PRINK (ALPROSTADIL) [Concomitant]
     Indication: ABDOMINAL PAIN
     Route: 041
  30. VEEN-F [Concomitant]
     Indication: FLUID REPLACEMENT
     Route: 041
  31. VEEN-D [Concomitant]
     Indication: FLUID REPLACEMENT
     Route: 041
  32. MEILAX [Concomitant]
     Indication: INSOMNIA
     Route: 048
  33. MEILAX [Concomitant]
     Indication: DEPRESSION
     Route: 048
  34. REMERON [Concomitant]
     Indication: DEPRESSION
     Route: 048
  35. MINZAIN [Concomitant]
     Indication: INSOMNIA
     Route: 048
  36. MIRADOL (SULPIRIDE) [Concomitant]
     Indication: DEPRESSION
     Route: 048

REACTIONS (2)
  - BILE DUCT CANCER [None]
  - DYSURIA [None]
